FAERS Safety Report 17689784 (Version 2)
Quarter: 2021Q4

REPORT INFORMATION
  Report Type: Spontaneous
  Country: DE (occurrence: DE)
  Receive Date: 20200421
  Receipt Date: 20211115
  Transmission Date: 20220304
  Serious: Yes (Hospitalization, Other)
  Sender: FDA-Public Use
  Company Number: DE-002147023-NVSC2020DE093075

PATIENT
  Sex: Male
  Weight: 85 kg

DRUGS (3)
  1. LEVETIRACETAM [Interacting]
     Active Substance: LEVETIRACETAM
     Indication: Craniocerebral injury
     Dosage: 250 MILLIGRAM, 2X/DAY (BID)
     Dates: start: 2019, end: 20191229
  2. LEVETIRACETAM [Interacting]
     Active Substance: LEVETIRACETAM
     Indication: Off label use
     Dosage: 500 MILLIGRAM, 2X/DAY (BID)
     Dates: start: 2019, end: 2019
  3. LEVETIRACETAM [Interacting]
     Active Substance: LEVETIRACETAM
     Dosage: 250 MILLIGRAM, 2X/DAY (BID)
     Dates: start: 2019, end: 2019

REACTIONS (15)
  - Loss of consciousness [Unknown]
  - Suicidal ideation [Unknown]
  - Weight decreased [Unknown]
  - Dyspnoea [Unknown]
  - Insomnia [Unknown]
  - Parosmia [Unknown]
  - Decreased appetite [Unknown]
  - Drug interaction [Unknown]
  - Diarrhoea [Unknown]
  - Defaecation disorder [Unknown]
  - Taste disorder [Recovering/Resolving]
  - Abdominal pain upper [Unknown]
  - Muscle spasms [Unknown]
  - Off label use [Unknown]
  - Immune system disorder [Unknown]
